FAERS Safety Report 9472710 (Version 1)
Quarter: 2013Q3

REPORT INFORMATION
  Report Type: Spontaneous
  Country: DE (occurrence: DE)
  Receive Date: 20130823
  Receipt Date: 20130823
  Transmission Date: 20140515
  Serious: Yes (Other)
  Sender: FDA-Public Use
  Company Number: DE-PFIZER INC-2013242216

PATIENT
  Age: 67 Year
  Sex: Female

DRUGS (3)
  1. LYRICA [Suspect]
     Indication: DEPRESSION
     Dosage: THE ONE HALF OF THE CAPSULES 25 MG IN THE MORNING, THE OTHER HALF AT NOON AND ONE CAPSULE 25MG
  2. METOPROLOL [Concomitant]
     Indication: BLOOD PRESSURE ABNORMAL
  3. ATARAX [Concomitant]
     Indication: BLOOD PRESSURE ABNORMAL

REACTIONS (3)
  - Off label use [Unknown]
  - Cholelithiasis [Unknown]
  - Restlessness [Unknown]
